FAERS Safety Report 8445957-7 (Version None)
Quarter: 2012Q2

REPORT INFORMATION
  Report Type: 
  Country: None (occurrence: None)
  Receive Date: 20120618
  Receipt Date: 20120612
  Transmission Date: 20120825
  Serious: Yes (Other)
  Sender: FDA-Public Use
  Company Number: US-GILEAD-2012-0056490

PATIENT
  Age: 37 Year
  Sex: Male

DRUGS (9)
  1. FLOLAN [Concomitant]
  2. FUROSEMIDE [Concomitant]
  3. LETAIRIS [Suspect]
     Indication: PULMONARY HYPERTENSION
     Dosage: 5 MG, QD
     Route: 048
     Dates: start: 20120301, end: 20120516
  4. ALBUTEROL [Concomitant]
  5. EPOPROSTENOL [Concomitant]
  6. SPIRONOLACTONE [Concomitant]
  7. METOLAZONE [Concomitant]
  8. WARFARIN SODIUM [Concomitant]
  9. POTASSIUM ACETATE [Concomitant]

REACTIONS (3)
  - OEDEMA [None]
  - WEIGHT INCREASED [None]
  - CARDIAC FAILURE [None]
